FAERS Safety Report 14999767 (Version 3)
Quarter: 2018Q4

REPORT INFORMATION
  Report Type: Spontaneous
  Country: GR (occurrence: GR)
  Receive Date: 20180612
  Receipt Date: 20181030
  Transmission Date: 20190204
  Serious: Yes (Other)
  Sender: FDA-Public Use
  Company Number: PHHY2018GR018198

PATIENT
  Age: 12 Year
  Sex: Female

DRUGS (1)
  1. OMNITROPE [Suspect]
     Active Substance: SOMATROPIN
     Indication: GROWTH HORMONE DEFICIENCY
     Dosage: 28.5 MCG/KG/H, UNK
     Route: 065
     Dates: start: 20160503

REACTIONS (2)
  - Injection site reaction [Recovering/Resolving]
  - Lipodystrophy acquired [Unknown]

NARRATIVE: CASE EVENT DATE: 20180228
